FAERS Safety Report 24129202 (Version 1)
Quarter: 2024Q3

REPORT INFORMATION
  Report Type: Spontaneous
  Country: US (occurrence: US)
  Receive Date: 20240723
  Receipt Date: 20240723
  Transmission Date: 20241016
  Serious: No
  Sender: SANOFI AVENTIS
  Company Number: US-SA-SAC20240718000836

PATIENT
  Sex: Male
  Weight: 77.56 kg

DRUGS (2)
  1. DUPIXENT [Suspect]
     Active Substance: DUPILUMAB
     Indication: Dermatitis atopic
     Dosage: 300 MG, QOW
     Route: 058
     Dates: start: 201908
  2. DUPIXENT [Suspect]
     Active Substance: DUPILUMAB
     Dosage: 300 MG, QW (CHANGED TO WEEKLY DOSING DUE TO UNCONTROLLED SYMPTOMS)
     Route: 058
     Dates: start: 201908

REACTIONS (2)
  - Dermatitis atopic [Unknown]
  - Off label use [Unknown]
